FAERS Safety Report 5745119-8 (Version None)
Quarter: 2008Q2

REPORT INFORMATION
  Report Type: 
  Country: None (occurrence: None)
  Receive Date: 20080521
  Receipt Date: 20080514
  Transmission Date: 20081010
  Serious: Yes (Other)
  Sender: FDA-Public Use
  Company Number: PHNU2008DE01803

PATIENT
  Age: 68 Year
  Sex: Female

DRUGS (2)
  1. CHEMOTHERAPEUTICS NOS [Concomitant]
  2. PROVAS [Suspect]
     Route: 048

REACTIONS (3)
  - CERVIX CARCINOMA [None]
  - COUGH [None]
  - SURGERY [None]
